FAERS Safety Report 6160295-3 (Version None)
Quarter: 2009Q2

REPORT INFORMATION
  Report Type: 
  Country: None (occurrence: None)
  Receive Date: 20090416
  Receipt Date: 20090403
  Transmission Date: 20091009
  Serious: Yes (Other)
  Sender: FDA-Public Use
  Company Number: 2008-180654-NL

PATIENT
  Age: 20 Year
  Sex: Female
  Weight: 52 kg

DRUGS (4)
  1. IMPLANON [Suspect]
     Indication: CONTRACEPTION
     Dates: start: 20060127, end: 20090120
  2. IMPLANON [Suspect]
     Indication: CONTRACEPTION
     Dates: start: 20090120
  3. CITALOPRAM HYDROBROMIDE [Concomitant]
  4. PARACETAMOL [Concomitant]

REACTIONS (2)
  - BLOOD HUMAN CHORIONIC GONADOTROPIN INCREASED [None]
  - OVARIAN DYSGERMINOMA STAGE UNSPECIFIED [None]
